FAERS Safety Report 8967653 (Version 1)
Quarter: 2012Q4

REPORT INFORMATION
  Report Type: Spontaneous
  Country: US (occurrence: None)
  Receive Date: 20121204
  Receipt Date: 20121204
  Transmission Date: 20130627
  Serious: Yes (Other)
  Sender: FDA-Public Use
  Company Number: CIP-2012-00438

PATIENT

DRUGS (2)
  1. DONEPEZIL [Suspect]
  2. FLUOXETINE [Suspect]

REACTIONS (2)
  - Drug interaction [None]
  - Cholinergic syndrome [None]
